FAERS Safety Report 14472362 (Version 2)
Quarter: 2018Q1

REPORT INFORMATION
  Report Type: Report from Study
  Country: None (occurrence: CA)
  Receive Date: 20180131
  Receipt Date: 20180213
  Transmission Date: 20180509
  Serious: Yes (Other)
  Sender: FDA-Public Use
  Company Number: CA-ABBVIE-17S-028-2175008-00

PATIENT
  Age: 66 Year
  Sex: Male
  Weight: 81.72 kg

DRUGS (3)
  1. BICALUTAMIDE. [Suspect]
     Active Substance: BICALUTAMIDE
     Indication: PRODUCT USED FOR UNKNOWN INDICATION
     Route: 048
  2. LUPRON DEPOT [Suspect]
     Active Substance: LEUPROLIDE ACETATE
     Indication: PROSTATE CANCER
     Route: 030
     Dates: start: 20171029
  3. FLOMAX [Concomitant]
     Active Substance: TAMSULOSIN HYDROCHLORIDE
     Indication: PRODUCT USED FOR UNKNOWN INDICATION
     Route: 048

REACTIONS (10)
  - Radical prostatectomy [Unknown]
  - Ejaculation failure [Unknown]
  - Fatigue [Not Recovered/Not Resolved]
  - Urinary hesitation [Recovering/Resolving]
  - Dysuria [Recovered/Resolved]
  - Headache [Not Recovered/Not Resolved]
  - Dyspepsia [Not Recovered/Not Resolved]
  - Lymphadenectomy [Unknown]
  - Urinary tract discomfort [Recovering/Resolving]
  - Asthenia [Not Recovered/Not Resolved]

NARRATIVE: CASE EVENT DATE: 2017
